FAERS Safety Report 14975210 (Version 1)
Quarter: 2018Q2

REPORT INFORMATION
  Report Type: Report from Study
  Country: US (occurrence: US)
  Receive Date: 20180605
  Receipt Date: 20180605
  Transmission Date: 20180711
  Serious: Yes (Death, Other)
  Sender: FDA-Public Use
  Company Number: US-MYLANLABS-2018M1037090

PATIENT
  Age: 60 Year
  Sex: Female
  Weight: 139 kg

DRUGS (2)
  1. PREDNISONE. [Suspect]
     Active Substance: PREDNISONE
     Indication: ACUTE GRAFT VERSUS HOST DISEASE
     Dosage: 140 MG, BID
     Route: 048
     Dates: start: 20170627
  2. RUXOLITINIB [Suspect]
     Active Substance: RUXOLITINIB
     Indication: GRAFT VERSUS HOST DISEASE
     Dosage: 5 MG, BID (Q12H)
     Route: 048
     Dates: start: 20170701, end: 20170709

REACTIONS (7)
  - Ventricular dysfunction [Unknown]
  - Nausea [Unknown]
  - Escherichia sepsis [Fatal]
  - Deep vein thrombosis [Unknown]
  - Fatigue [Unknown]
  - Septic shock [Fatal]
  - Atrial fibrillation [Unknown]

NARRATIVE: CASE EVENT DATE: 20170703
